FAERS Safety Report 17412388 (Version 1)
Quarter: 2020Q1

REPORT INFORMATION
  Report Type: Spontaneous
  Country: US (occurrence: US)
  Receive Date: 20200212
  Receipt Date: 20200212
  Transmission Date: 20200409
  Serious: Yes (Death)
  Sender: FDA-Public Use
  Company Number: None

PATIENT
  Age: 33 Year
  Sex: Female
  Weight: 73.8 kg

DRUGS (2)
  1. VENLAFAXINE ER [Concomitant]
     Active Substance: VENLAFAXINE HYDROCHLORIDE
     Dates: start: 20181113, end: 20190211
  2. ZOLPIDEM TART ER [Suspect]
     Active Substance: ZOLPIDEM TARTRATE
     Indication: INSOMNIA
     Dates: start: 20180307, end: 20190211

REACTIONS (4)
  - Intentional self-injury [None]
  - Head injury [None]
  - Gun shot wound [None]
  - Alcohol use [None]

NARRATIVE: CASE EVENT DATE: 20190211
